FAERS Safety Report 6418576-1 (Version None)
Quarter: 2009Q4

REPORT INFORMATION
  Report Type: 
  Country: None (occurrence: None)
  Receive Date: 20091026
  Receipt Date: 20091013
  Transmission Date: 20100525
  Serious: Yes (Other)
  Sender: FDA-Public Use
  Company Number: ADR37052009

PATIENT
  Age: 78 Year
  Sex: Male

DRUGS (6)
  1. SIMVASTATIN [Suspect]
     Indication: MYOCARDIAL ISCHAEMIA
     Dosage: 40 MG ORAL
     Route: 048
     Dates: start: 20070501, end: 20071001
  2. ASPIRIN [Concomitant]
  3. ATENOLOL [Concomitant]
  4. ATORVASTATIN [Concomitant]
  5. BENDROFLUMETHIAZIDE [Concomitant]
  6. GLYCERYL TRINITRATE [Concomitant]

REACTIONS (1)
  - ANGINA PECTORIS [None]
